FAERS Safety Report 4771589-8 (Version None)
Quarter: 2005Q3

REPORT INFORMATION
  Report Type: 
  Country: None (occurrence: None)
  Receive Date: 20050914
  Receipt Date: 20050914
  Transmission Date: 20060218
  Serious: Yes (Death)
  Sender: FDA-Public Use
  Company Number: None

PATIENT
  Age: 51 Year
  Sex: Male
  Weight: 97.5234 kg

DRUGS (3)
  1. OXALIPLATIN [Suspect]
     Indication: METASTATIC MALIGNANT MELANOMA
     Dosage: 150 MG Q 21 DAYS IV BOLUS
     Route: 040
     Dates: start: 20050303, end: 20050304
  2. DOCETAXEL [Suspect]
     Indication: METASTATIC MALIGNANT MELANOMA
     Dosage: 187 MG Q 21 DAY IV BOLUS
     Route: 040
     Dates: start: 20050303, end: 20050304
  3. GM-CSF [Suspect]
     Indication: METASTATIC MALIGNANT MELANOMA
     Dosage: 500 MCG Q 21 DAYS SQ
     Route: 058
     Dates: start: 20050305, end: 20050314

REACTIONS (1)
  - DISEASE PROGRESSION [None]
